FAERS Safety Report 8619632-X (Version None)
Quarter: 2012Q3

REPORT INFORMATION
  Report Type: 
  Country: None (occurrence: None)
  Receive Date: 20120824
  Receipt Date: 20100918
  Transmission Date: 20120928
  Serious: Yes (Other)
  Sender: FDA-Public Use
  Company Number: CO-PFIZER INC-2012202980

PATIENT
  Age: 78 Year
  Sex: Male

DRUGS (2)
  1. LIPITOR [Suspect]
     Indication: DYSLIPIDAEMIA
     Dosage: 10 MG, 1X/DAY
  2. OLMESARTAN MEDOXOMIL AND HYDROCHLOROTHIZIDE [Suspect]
     Indication: HYPERTENSION
     Dosage: [OLMESARTAN MEDOXOMIL 20 MG/ HYDROCHLOROTHIAZIDE 12.5 MG], 1X/DAY

REACTIONS (4)
  - LEUKOCYTURIA [None]
  - RENAL FAILURE CHRONIC [None]
  - EXERCISE LACK OF [None]
  - HAEMATURIA [None]
